FAERS Safety Report 7124690-8 (Version None)
Quarter: 2010Q4

REPORT INFORMATION
  Report Type: 
  Country: None (occurrence: None)
  Receive Date: 20101122
  Receipt Date: 20101122
  Transmission Date: 20110411
  Serious: No
  Sender: FDA-Public Use
  Company Number: None

PATIENT
  Age: 43 Year
  Sex: Female

DRUGS (3)
  1. REMICADE [Suspect]
     Dosage: 400MG IV
     Route: 042
  2. TYLENOL [Concomitant]
  3. CLARITIN [Concomitant]

REACTIONS (2)
  - INFUSION RELATED REACTION [None]
  - PRURITUS [None]
